FAERS Safety Report 14547267 (Version 1)
Quarter: 2018Q1

REPORT INFORMATION
  Report Type: Spontaneous
  Country: US (occurrence: US)
  Receive Date: 20180219
  Receipt Date: 20180219
  Transmission Date: 20180509
  Serious: Yes (Death, Other)
  Sender: FDA-Public Use
  Company Number: US-BAYER-2018-026856

PATIENT
  Age: 36 Year
  Sex: Female

DRUGS (3)
  1. BETAMETHASONE. [Suspect]
     Active Substance: BETAMETHASONE
     Indication: PAIN
  2. CODEINE [Suspect]
     Active Substance: CODEINE
     Indication: PAIN
  3. PARACETAMOL [Suspect]
     Active Substance: ACETAMINOPHEN
     Indication: PAIN
     Dosage: UNK

REACTIONS (9)
  - Sickle cell anaemia with crisis [None]
  - Tachypnoea [None]
  - Circulatory collapse [None]
  - Acute chest syndrome [Fatal]
  - Fat embolism [Fatal]
  - Pneumonia [None]
  - Premature labour [None]
  - Maternal exposure during pregnancy [None]
  - Pyrexia [None]
